FAERS Safety Report 10901734 (Version 1)
Quarter: 2015Q1

REPORT INFORMATION
  Report Type: Spontaneous
  Country: HR (occurrence: HR)
  Receive Date: 20150310
  Receipt Date: 20150310
  Transmission Date: 20150721
  Serious: Yes (Hospitalization)
  Sender: FDA-Public Use
  Company Number: HR-TEVA-546067ISR

PATIENT
  Age: 24 Year
  Sex: Female

DRUGS (1)
  1. CEFALIN 1 G [Suspect]
     Active Substance: CEPHALEXIN
     Indication: PHARYNGITIS
     Dosage: 2 GRAM DAILY; 2000 MG
     Route: 045
     Dates: start: 20140317, end: 20140318

REACTIONS (1)
  - Dystonia [Recovered/Resolved]

NARRATIVE: CASE EVENT DATE: 20140318
